FAERS Safety Report 5005968-0 (Version None)
Quarter: 2006Q2

REPORT INFORMATION
  Report Type: 
  Country: None (occurrence: None)
  Receive Date: 20060517
  Receipt Date: 20060517
  Transmission Date: 20061013
  Serious: Yes (Other)
  Sender: FDA-Public Use
  Company Number: None

PATIENT
  Sex: Male

DRUGS (12)
  1. ENALAPRIL 20 MG [Suspect]
     Indication: DIABETES MELLITUS
     Dosage: 20 MG DAILY PO
     Route: 048
     Dates: start: 20040716, end: 20060122
  2. ENALAPRIL 20 MG [Suspect]
     Indication: HYPERTENSION
     Dosage: 20 MG DAILY PO
     Route: 048
     Dates: start: 20040716, end: 20060122
  3. ASPIRIN [Concomitant]
  4. BUPROPION [Concomitant]
  5. FELODIPINE [Concomitant]
  6. INSULIN [Concomitant]
  7. METFORMIN [Concomitant]
  8. MULTIVITAMINS WITH MINERALS [Concomitant]
  9. PENTOXIFYLLINE [Concomitant]
  10. PSYLLIUM [Concomitant]
  11. SALSALATE [Concomitant]
  12. SIMVASTATIN [Concomitant]

REACTIONS (2)
  - PHARYNGEAL OEDEMA [None]
  - SWOLLEN TONGUE [None]
